FAERS Safety Report 25880655 (Version 1)
Quarter: 2025Q4

REPORT INFORMATION
  Report Type: Spontaneous
  Country: EU (occurrence: EU)
  Receive Date: 20251004
  Receipt Date: 20251004
  Transmission Date: 20260117
  Serious: Yes (Other)
  Sender: NOVARTIS
  Company Number: None

PATIENT
  Age: 77 Year
  Sex: Female
  Weight: 65 kg

DRUGS (3)
  1. LUTATHERA [Suspect]
     Active Substance: LUTETIUM OXODOTREOTIDE LU-177
     Indication: Meningioma
     Dosage: 6.8 GBQ, CYCLIC (370 MBQ/ML)
     Route: 042
     Dates: start: 20250620, end: 20250620
  2. LUTATHERA [Suspect]
     Active Substance: LUTETIUM OXODOTREOTIDE LU-177
     Dosage: 7.23 GBQ, CYCLIC
     Route: 042
     Dates: start: 20250430, end: 20250430
  3. LUTATHERA [Suspect]
     Active Substance: LUTETIUM OXODOTREOTIDE LU-177
     Dosage: 7.4 GBQ, CYCLIC
     Route: 042
     Dates: start: 20250307, end: 20250307

REACTIONS (3)
  - Urinary tract infection [Recovering/Resolving]
  - Oral fungal infection [Recovering/Resolving]
  - Urinary incontinence [Recovered/Resolved]

NARRATIVE: CASE EVENT DATE: 20250307
